FAERS Safety Report 4834409-9 (Version None)
Quarter: 2005Q4

REPORT INFORMATION
  Report Type: 
  Country: None (occurrence: None)
  Receive Date: 20051122
  Receipt Date: 20051109
  Transmission Date: 20060501
  Serious: Yes (Other)
  Sender: FDA-Public Use
  Company Number: PHBS2005JP16492

PATIENT
  Age: 63 Year
  Sex: Female

DRUGS (7)
  1. CARBAMAZEPINE [Suspect]
     Indication: EPILEPSY
     Dosage: 200 MG/DAY
     Route: 048
  2. CARBAMAZEPINE [Suspect]
     Dosage: 1200 MG/DAY
     Route: 048
     Dates: end: 20031002
  3. CARBAMAZEPINE [Suspect]
     Dosage: 600 MG/DAY
     Route: 048
     Dates: start: 20031008
  4. CARBAMAZEPINE [Suspect]
     Dosage: 500 MG/DAY
     Route: 048
  5. VALPROATE SODIUM [Suspect]
     Indication: EPILEPSY
     Dosage: 200 MG/DAY
     Route: 048
  6. VALPROATE SODIUM [Suspect]
     Dosage: 1200 MG/DAY
     Route: 048
  7. VALPROATE SODIUM [Suspect]
     Dosage: 500 MG/DAY
     Route: 048

REACTIONS (12)
  - BALANCE DISORDER [None]
  - DEAFNESS NEUROSENSORY [None]
  - DIFFICULTY IN WALKING [None]
  - DIPLOPIA [None]
  - DIZZINESS [None]
  - DRUG TOXICITY [None]
  - MENINGIOMA [None]
  - MENINGIOMA SURGERY [None]
  - NYSTAGMUS [None]
  - OSCILLOPSIA [None]
  - SACCADIC EYE MOVEMENT [None]
  - VISUAL DISTURBANCE [None]
